FAERS Safety Report 6552311-1 (Version None)
Quarter: 2010Q1

REPORT INFORMATION
  Report Type: 
  Country: None (occurrence: None)
  Receive Date: 20100126
  Receipt Date: 20100120
  Transmission Date: 20100710
  Serious: Yes (Other)
  Sender: FDA-Public Use
  Company Number: DE-SANOFI-AVENTIS-2010SA003295

PATIENT
  Age: 96 Year
  Weight: 65 kg

DRUGS (3)
  1. MEPERIDINE HCL [Suspect]
     Indication: CATARACT OPERATION
     Route: 065
  2. ATOSIL [Concomitant]
     Indication: CATARACT OPERATION
  3. RISPERIDONE [Concomitant]
     Indication: SCHIZOPHRENIA
     Dates: end: 20091108

REACTIONS (1)
  - PANIC ATTACK [None]
